FAERS Safety Report 7979678-1 (Version None)
Quarter: 2011Q4

REPORT INFORMATION
  Report Type: 
  Country: None (occurrence: None)
  Receive Date: 20111214
  Receipt Date: 20111206
  Transmission Date: 20120403
  Serious: Yes (Other)
  Sender: FDA-Public Use
  Company Number: BR-ROCHE-1007294

PATIENT
  Sex: Female

DRUGS (7)
  1. XOLAIR [Suspect]
     Dates: start: 20100101
  2. ALPRAZOLAM [Concomitant]
  3. XOLAIR [Suspect]
     Dosage: 2 AMPOULES
     Dates: start: 20110627
  4. XOLAIR [Suspect]
  5. XOLAIR [Suspect]
     Dates: start: 20110823
  6. XOLAIR [Suspect]
     Dates: start: 20110917
  7. XOLAIR [Suspect]
     Indication: ASTHMA
     Dates: start: 20100101

REACTIONS (15)
  - ROAD TRAFFIC ACCIDENT [None]
  - DRUG DISPENSING ERROR [None]
  - UNDERDOSE [None]
  - BACK PAIN [None]
  - HYPERHIDROSIS [None]
  - ABDOMINAL PAIN [None]
  - PHARYNGEAL DISORDER [None]
  - DYSPNOEA [None]
  - CRYING [None]
  - BONE PAIN [None]
  - TREMOR [None]
  - VOMITING [None]
  - FEELING COLD [None]
  - COUGH [None]
  - RESPIRATORY TRACT CONGESTION [None]
